FAERS Safety Report 21496941 (Version 1)
Quarter: 2022Q4

REPORT INFORMATION
  Report Type: Report from Study
  Country: CA (occurrence: CA)
  Receive Date: 20221023
  Receipt Date: 20221023
  Transmission Date: 20230112
  Serious: Yes (Life-Threatening, Hospitalization)
  Sender: FDA-Public Use
  Company Number: CA-CHIESI-2021CHF06483

PATIENT
  Age: 85 Year
  Sex: Female

DRUGS (2)
  1. DEFERIPRONE [Suspect]
     Active Substance: DEFERIPRONE
     Indication: Myelodysplastic syndrome
     Dosage: 2000 MILLIGRAM, TID
     Route: 048
     Dates: start: 20170610
  2. DEFERIPRONE [Suspect]
     Active Substance: DEFERIPRONE
     Indication: Off label use

REACTIONS (6)
  - Terminal state [Unknown]
  - Haemorrhage [Unknown]
  - Illness [Unknown]
  - Infection [Unknown]
  - Disease complication [Unknown]
  - Off label use [Recovered/Resolved]

NARRATIVE: CASE EVENT DATE: 20170610
